FAERS Safety Report 15060756 (Version 1)
Quarter: 2018Q2

REPORT INFORMATION
  Report Type: Report from Study
  Country: JP (occurrence: JP)
  Receive Date: 20180625
  Receipt Date: 20180625
  Transmission Date: 20180711
  Serious: No
  Sender: FDA-Public Use
  Company Number: JP-JNJFOC-20180630199

PATIENT
  Age: 34 Year
  Sex: Male
  Weight: 84 kg

DRUGS (11)
  1. STELARA [Suspect]
     Active Substance: USTEKINUMAB
     Indication: CROHN^S DISEASE
     Dosage: 130 MG
     Route: 058
     Dates: start: 20180221, end: 20180221
  2. CALONAL [Concomitant]
     Active Substance: ACETAMINOPHEN
     Route: 048
  3. CARBOCISTEINE [Concomitant]
     Active Substance: CARBOCYSTEINE
     Route: 048
  4. STELARA [Suspect]
     Active Substance: USTEKINUMAB
     Indication: CROHN^S DISEASE
     Dosage: 45 MG
     Route: 058
     Dates: start: 20180411
  5. PA [Concomitant]
     Active Substance: ACETAMINOPHEN\CAFFEINE\PROMETHAZINE\SALICYLAMIDE
     Route: 048
  6. PRANLUKAST [Concomitant]
     Active Substance: PRANLUKAST
     Route: 048
  7. MECOBALAMIN [Concomitant]
     Active Substance: METHYLCOBALAMIN
     Route: 048
  8. MEDICON [Concomitant]
     Active Substance: DEXTROMETHORPHAN HYDROBROMIDE
     Route: 048
  9. FEBURIC [Concomitant]
     Active Substance: FEBUXOSTAT
     Route: 048
  10. AZANIN [Concomitant]
     Active Substance: AZATHIOPRINE
     Indication: CROHN^S DISEASE
     Route: 065
  11. CELECOX [Concomitant]
     Active Substance: CELECOXIB
     Route: 048

REACTIONS (4)
  - Osteoarthritis [Recovered/Resolved]
  - Ureterolithiasis [Recovered/Resolved]
  - Cholelithiasis [Not Recovered/Not Resolved]
  - Upper respiratory tract inflammation [Recovered/Resolved]

NARRATIVE: CASE EVENT DATE: 20180323
